FAERS Safety Report 10020843 (Version 1)
Quarter: 2014Q1

REPORT INFORMATION
  Report Type: Spontaneous
  Country: US (occurrence: None)
  Receive Date: 20140313
  Receipt Date: 20140313
  Transmission Date: 20141002
  Serious: Yes (Other)
  Sender: FDA-Public Use
  Company Number: VAL_03027_2014

PATIENT
  Age: 17 Year
  Sex: Female

DRUGS (7)
  1. METOPROLOL [Suspect]
     Indication: BLOOD PRESSURE INCREASED
  2. TACROLIMUS [Suspect]
     Indication: IMMUNOSUPPRESSANT DRUG THERAPY
  3. AMLODIPINE [Suspect]
     Indication: BLOOD PRESSURE INCREASED
  4. ENALAPRIL [Suspect]
     Indication: BLOOD PRESSURE INCREASED
  5. GANICICLOVIR [Concomitant]
  6. AZATHIOPRINE [Concomitant]
  7. PREDNISONE [Concomitant]

REACTIONS (4)
  - Grand mal convulsion [None]
  - Blood pressure increased [None]
  - Posterior reversible encephalopathy syndrome [None]
  - Brain oedema [None]
